FAERS Safety Report 4996715-7 (Version None)
Quarter: 2006Q2

REPORT INFORMATION
  Report Type: 
  Country: None (occurrence: None)
  Receive Date: 20060509
  Receipt Date: 20041015
  Transmission Date: 20061013
  Serious: Yes (Hospitalization, Disabling)
  Sender: FDA-Public Use
  Company Number: US-MERCK-0410USA02387

PATIENT
  Age: 44 Year
  Sex: Male

DRUGS (5)
  1. VIOXX [Suspect]
     Indication: ARTHROPATHY
     Route: 048
     Dates: start: 20020701, end: 20030101
  2. ALTACE [Concomitant]
     Route: 065
  3. PLAVIX [Concomitant]
     Route: 065
  4. TOPROL-XL [Concomitant]
     Route: 065
  5. LASIX [Concomitant]
     Route: 065

REACTIONS (3)
  - MYOCARDIAL INFARCTION [None]
  - STENT OCCLUSION [None]
  - THROMBOSIS IN DEVICE [None]
